FAERS Safety Report 5781208-X (Version None)
Quarter: 2008Q2

REPORT INFORMATION
  Report Type: 
  Country: None (occurrence: None)
  Receive Date: 20080618
  Receipt Date: 20080605
  Transmission Date: 20081010
  Serious: Yes (Hospitalization)
  Sender: FDA-Public Use
  Company Number: 234268J08USA

PATIENT
  Age: 63 Year
  Sex: Male
  Weight: 106.5953 kg

DRUGS (3)
  1. REBIF [Suspect]
     Indication: MULTIPLE SCLEROSIS
     Dosage: 44 MCG, 3 IN 1 WEEKS, SUBCUTANEOUS
     Route: 058
     Dates: start: 20061115, end: 20080502
  2. REBIF [Suspect]
     Indication: MULTIPLE SCLEROSIS
     Dosage: 44 MCG, 3 IN 1 WEEKS, SUBCUTANEOUS
     Route: 058
     Dates: start: 20080501
  3. STEROID (CORTICOSTEROID NOS) [Concomitant]

REACTIONS (3)
  - CONDITION AGGRAVATED [None]
  - MULTIPLE SCLEROSIS [None]
  - PNEUMONIA [None]
